FAERS Safety Report 7257872-5 (Version None)
Quarter: 2011Q1

REPORT INFORMATION
  Report Type: 
  Country: None (occurrence: None)
  Receive Date: 20110129
  Receipt Date: 20100502
  Transmission Date: 20110831
  Serious: No
  Sender: FDA-Public Use
  Company Number: US-ABBOTT-10P-163-0642617-00

PATIENT
  Age: 31 Year
  Sex: Female

DRUGS (18)
  1. DILAUDID [Concomitant]
     Indication: PRODUCT USED FOR UNKNOWN INDICATION
  2. IMITREX [Concomitant]
     Indication: MIGRAINE
  3. PLAQUENIL [Concomitant]
     Indication: PRODUCT USED FOR UNKNOWN INDICATION
  4. TYLENOL-500 [Concomitant]
     Indication: PRODUCT USED FOR UNKNOWN INDICATION
  5. COLACE [Concomitant]
     Indication: PRODUCT USED FOR UNKNOWN INDICATION
  6. OMEPRAZOLE [Concomitant]
     Indication: PRODUCT USED FOR UNKNOWN INDICATION
  7. FLORINEAL [Concomitant]
     Indication: PRODUCT USED FOR UNKNOWN INDICATION
  8. PHENOBARBITAL [Concomitant]
     Indication: PRODUCT USED FOR UNKNOWN INDICATION
  9. VIT K RX STRENGTH [Concomitant]
     Indication: PRODUCT USED FOR UNKNOWN INDICATION
  10. MEDROL [Concomitant]
     Indication: PRODUCT USED FOR UNKNOWN INDICATION
  11. FLEXERIL [Concomitant]
     Indication: MUSCLE SPASMS
  12. ALLEGRA [Concomitant]
     Indication: PRODUCT USED FOR UNKNOWN INDICATION
  13. FOLIC ACID [Concomitant]
     Indication: PRODUCT USED FOR UNKNOWN INDICATION
  14. HUMIRA [Suspect]
     Indication: RHEUMATOID ARTHRITIS
     Dates: start: 20090401
  15. THERA TEARS [Concomitant]
     Indication: PRODUCT USED FOR UNKNOWN INDICATION
  16. NUTRITION [Concomitant]
     Indication: PRODUCT USED FOR UNKNOWN INDICATION
     Dosage: COMBINATION OF OMEGA 3, VITAMIN E, B6, AND B12
  17. EVOXAC [Concomitant]
     Indication: PRODUCT USED FOR UNKNOWN INDICATION
  18. ZOFRAN [Concomitant]
     Indication: NAUSEA

REACTIONS (4)
  - RASH PAPULAR [None]
  - RASH PRURITIC [None]
  - PURPURA [None]
  - RESPIRATORY TRACT INFECTION VIRAL [None]
